FAERS Safety Report 17724542 (Version 1)
Quarter: 2020Q2

REPORT INFORMATION
  Report Type: Spontaneous
  Country: US (occurrence: US)
  Receive Date: 20200429
  Receipt Date: 20200429
  Transmission Date: 20200714
  Serious: Yes (Hospitalization)
  Sender: FDA-Public Use
  Company Number: US-PFIZER INC-2020170829

PATIENT
  Age: 25 Year
  Sex: Female
  Weight: 79.38 kg

DRUGS (2)
  1. PHENYTOIN SODIUM. [Suspect]
     Active Substance: PHENYTOIN SODIUM
     Indication: SEIZURE
     Dosage: 200 MG, 3X/DAY (TWO 100MG CAPSULES BY MOUTH THREE TIMES DAILY)
     Route: 048
  2. PHENYTOIN SODIUM. [Suspect]
     Active Substance: PHENYTOIN SODIUM
     Dosage: 100 MG, 3X/DAY (ONE 100MG CAPSULE BY MOUTH THREE TIMES DAILY)
     Route: 048

REACTIONS (3)
  - Tremor [Unknown]
  - Drug level decreased [Recovered/Resolved]
  - Confusional state [Unknown]

NARRATIVE: CASE EVENT DATE: 202004
